FAERS Safety Report 21690005 (Version 2)
Quarter: 2022Q4

REPORT INFORMATION
  Report Type: Spontaneous
  Country: GB (occurrence: GB)
  Receive Date: 20221206
  Receipt Date: 20221209
  Transmission Date: 20230113
  Serious: Yes (Death, Hospitalization, Other)
  Sender: FDA-Public Use
  Company Number: GB-Crescent Pharma Limited-001202203-000055

PATIENT
  Age: 59 Year
  Sex: Male
  Weight: 62 kg

DRUGS (205)
  1. HALOPERIDOL [Suspect]
     Active Substance: HALOPERIDOL
     Indication: Schizophrenia
     Dosage: 10 MILLIGRAM DAILY; 10 MG, QD, THERAPY START DATE : ASKU , THERAPY END DATE : ASKU
  2. HALOPERIDOL [Suspect]
     Active Substance: HALOPERIDOL
     Dosage: 10 MILLIGRAM DAILY; 5 MILLIGRAM, TWO TIMES A DAY (5 MG, BID), THERAPY START DATE : ASKU , THERAPY EN
  3. HALOPERIDOL [Suspect]
     Active Substance: HALOPERIDOL
     Dosage: 20 MILLIGRAM DAILY; 20 MILLIGRAM, ONCE A DAY (10 MILLIGRAM, BID), THERAPY START DATE : ASKU , THERAP
  4. HALOPERIDOL [Suspect]
     Active Substance: HALOPERIDOL
     Dosage: 10 MILLIGRAM DAILY; 5 MG, BID, THERAPY START DATE : ASKU , THERAPY END DATE : ASKU
  5. HALOPERIDOL [Suspect]
     Active Substance: HALOPERIDOL
     Dosage: 40 MILLIGRAM DAILY; 40 MG, QD, THERAPY START DATE : ASKU , THERAPY END DATE : ASKU
  6. HALOPERIDOL [Suspect]
     Active Substance: HALOPERIDOL
     Dosage: 20 MILLIGRAM, TWO TIMES A DAY (10 MG, 2X/DAY), THERAPY START DATE : ASKU , THERAPY END DATE : ASKU
  7. HALOPERIDOL [Suspect]
     Active Substance: HALOPERIDOL
     Dosage: 10 MILLIGRAM DAILY; 10 MILLIGRAM, ONCE A DAY (5 MILLIGRAM, BID), THERAPY START DATE : ASKU , THERAPY
  8. HALOPERIDOL [Suspect]
     Active Substance: HALOPERIDOL
     Dosage: 20 MILLIGRAM DAILY; 20 MILLIGRAM, TWO TIMES A DAY (10 MG, 2X/DAY)
  9. HALOPERIDOL [Suspect]
     Active Substance: HALOPERIDOL
     Dosage: 10 MILLIGRAM DAILY; 5 MILLIGRAM, BID(2X/DAY), THERAPY START DATE : ASKU , THERAPY END DATE : ASKU
  10. HALOPERIDOL [Suspect]
     Active Substance: HALOPERIDOL
     Dosage: 40 MILLIGRAM DAILY; 40 MILLIGRAM, ONCE A DAY (20MG BID), THERAPY START DATE : ASKU , THERAPY END DAT
  11. HALOPERIDOL [Suspect]
     Active Substance: HALOPERIDOL
     Dosage: 10 MILLIGRAM DAILY; 10 MG, QD, THERAPY START DATE : ASKU , THERAPY END DATE : ASKU
  12. HALOPERIDOL [Suspect]
     Active Substance: HALOPERIDOL
     Dosage: 5 MILLIGRAM DAILY; 5 MILLIGRAM, ONCE A DAY, THERAPY START DATE : ASKU , THERAPY END DATE : ASKU
  13. HALOPERIDOL [Suspect]
     Active Substance: HALOPERIDOL
     Dosage: 20 MILLIGRAM DAILY; 20 MG, QD, THERAPY START DATE : ASKU , THERAPY END DATE : ASKU
  14. HALOPERIDOL [Suspect]
     Active Substance: HALOPERIDOL
     Dosage: 20 MILLIGRAM DAILY; 10 MG, BID(2X/DAY), THERAPY START DATE : ASKU , THERAPY END DATE : ASKU
  15. HALOPERIDOL [Suspect]
     Active Substance: HALOPERIDOL
     Dosage: 20 MILLIGRAM DAILY; 20 MG, QD, THERAPY START DATE : ASKU , THERAPY END DATE : ASKU
  16. HALOPERIDOL [Suspect]
     Active Substance: HALOPERIDOL
     Dosage: 5 MG, BID, THERAPY START DATE : ASKU , THERAPY END DATE : ASKU
  17. HALOPERIDOL [Suspect]
     Active Substance: HALOPERIDOL
     Dosage: 5 MILLIGRAM, ONCE A DAY, THERAPY START DATE : ASKU , THERAPY END DATE : ASKU
  18. OLANZAPINE [Suspect]
     Active Substance: OLANZAPINE
     Indication: Schizophrenia
     Dosage: 15 MG, THERAPY END DATE : ASKU
     Route: 065
     Dates: start: 20060704
  19. OLANZAPINE [Suspect]
     Active Substance: OLANZAPINE
     Dosage: 10 MG, THERAPY START DATE : ASKU , THERAPY END DATE : ASKU
     Route: 065
  20. OLANZAPINE [Suspect]
     Active Substance: OLANZAPINE
     Dosage: 2.5 MG, THERAPY END DATE : ASKU
     Route: 065
     Dates: start: 20080823
  21. OLANZAPINE [Suspect]
     Active Substance: OLANZAPINE
     Dosage: UNK, THERAPY START DATE : ASKU , THERAPY END DATE : ASKU
     Route: 065
  22. OLANZAPINE [Suspect]
     Active Substance: OLANZAPINE
     Dosage: 10 MG, THERAPY START DATE : ASKU , THERAPY END DATE : ASKU
     Route: 065
  23. OLANZAPINE [Suspect]
     Active Substance: OLANZAPINE
     Dosage: 10 MG
     Route: 065
  24. OLANZAPINE [Suspect]
     Active Substance: OLANZAPINE
     Dosage: 15 MG, UNKNOWN, THERAPY END DATE : NASK
     Route: 065
     Dates: start: 20060704
  25. OLANZAPINE [Suspect]
     Active Substance: OLANZAPINE
     Dosage: 15 MG, THERAPY END DATE : ASKU
     Route: 065
     Dates: start: 20040217
  26. OLANZAPINE [Suspect]
     Active Substance: OLANZAPINE
     Dosage: 10 MG, THERAPY START DATE  : NASK ,  THERAPY END DATE : NASK, UNIT DOSE : 10 MG
     Route: 065
  27. OLANZAPINE [Suspect]
     Active Substance: OLANZAPINE
     Dosage: 10 MG, THERAPY START DATE : ASKU , THERAPY END DATE : ASKU, UNIT DOSE : 10 MG
     Route: 065
  28. OLANZAPINE [Suspect]
     Active Substance: OLANZAPINE
     Dosage: 1 MG, THERAPY START DATE : ASKU , THERAPY END DATE : ASKU, UNIT DOSE : 1 MG
     Route: 065
  29. RISPERIDONE [Suspect]
     Active Substance: RISPERIDONE
     Indication: Schizophrenia
     Dosage: 6 MILLIGRAM DAILY; 6 MILLIGRAM, ONCE A DAY
     Route: 065
  30. RISPERIDONE [Suspect]
     Active Substance: RISPERIDONE
     Dosage: 4 MILLIGRAM DAILY; 2 MG, BID
     Route: 065
  31. RISPERIDONE [Suspect]
     Active Substance: RISPERIDONE
     Dosage: 4 MILLIGRAM DAILY; (2 MG, BID)
     Route: 065
  32. RISPERIDONE [Suspect]
     Active Substance: RISPERIDONE
     Dosage: 1 GRAM DAILY; 1 GRAM, ONCE A DAY
     Route: 065
  33. RISPERIDONE [Suspect]
     Active Substance: RISPERIDONE
     Dosage: 4 MILLIGRAM DAILY; 4 MILLIGRAM, ONCE A DAY
     Route: 065
  34. RISPERIDONE [Suspect]
     Active Substance: RISPERIDONE
     Dosage: 6 MILLIGRAM DAILY; 3 MILLIGRAM, TWO TIMES A DAY (3 MG, BID)
     Route: 065
  35. RISPERIDONE [Suspect]
     Active Substance: RISPERIDONE
     Dosage: 4 MILLIGRAM DAILY; 2 MILLIGRAM, TWO TIMES A DAY (2 MG, BID)
     Route: 065
  36. RISPERIDONE [Suspect]
     Active Substance: RISPERIDONE
     Dosage: 6 MILLIGRAM, ONCE A DAY, UNIT DOSE : 12 MG, FREQUENCY TIME : 1 DAY
     Route: 065
  37. RISPERIDONE [Suspect]
     Active Substance: RISPERIDONE
     Dosage: 1 MILLIGRAM DAILY; 1 MILLIGRAM, DAILY
     Route: 065
  38. DOCETAXEL [Suspect]
     Active Substance: DOCETAXEL
     Indication: Breast cancer metastatic
     Dosage: UNK, THERAPY END DATE : NASK, DURATION : 63 DAYS
     Route: 065
     Dates: start: 20151222
  39. DOCETAXEL [Suspect]
     Active Substance: DOCETAXEL
     Dosage: UNIT DOSE : 220 MG, DURATION : 63 DAYS
     Route: 065
  40. DOCETAXEL [Suspect]
     Active Substance: DOCETAXEL
     Dosage: 110 MG, Q3W (CUMULATIVE DOSE: 324.98), DURATION : 63 DAYS, FREQUENCY TIME : 3 WEEKS
     Route: 065
     Dates: start: 20150930, end: 20151021
  41. PACLITAXEL [Suspect]
     Active Substance: PACLITAXEL
     Indication: Breast cancer metastatic
     Dosage: 120 MG, WEEKLY (1/W), THERAPY END DATE : NASK, DURATION : 41 DAYS, FREQUENCY TIME : 1 WEEKS, UNIT DO
     Route: 065
     Dates: start: 20151111
  42. PACLITAXEL [Suspect]
     Active Substance: PACLITAXEL
     Dosage: 120 MG, QW (CUMULATIVE DOSE: 377.142), FREQUENCY TIME : 1 WEEKS, UNIT DOSE : 120 MG, DURATION : 41 D
     Route: 065
     Dates: start: 20151223, end: 20151223
  43. PACLITAXEL [Suspect]
     Active Substance: PACLITAXEL
     Dosage: 150 MG, QW (CUMULATIVE DOSE: 428.57 MG, FREQUENCY TIME : 1 WEEKS, UNIT DOSE : 150 MG, DURATION : 41
     Route: 065
     Dates: start: 20151111, end: 20151222
  44. ARIPIPRAZOLE [Suspect]
     Active Substance: ARIPIPRAZOLE
     Indication: Schizophrenia
     Dosage: 5 MG, THERAPY START DATE : ASKU , THERAPY END DATE : ASKU, UNIT DOSE :  5 MG
     Route: 065
  45. ARIPIPRAZOLE [Suspect]
     Active Substance: ARIPIPRAZOLE
     Dosage: 5 MG, THERAPY START DATE : ASKU , THERAPY END DATE : ASKU, UNIT DOSE :5 MG
     Route: 065
  46. ARIPIPRAZOLE [Suspect]
     Active Substance: ARIPIPRAZOLE
     Dosage: UNK, THERAPY START DATE : ASKU , THERAPY END DATE : ASKU
     Route: 065
  47. ARIPIPRAZOLE [Suspect]
     Active Substance: ARIPIPRAZOLE
     Dosage: 5 MG, THERAPY START DATE : ASKU , THERAPY END DATE : ASKU, UNIT DOSE :  5 MG
     Route: 065
  48. ARIPIPRAZOLE [Suspect]
     Active Substance: ARIPIPRAZOLE
     Dosage: 5 MG, THERAPY START DATE : ASKU , THERAPY END DATE : ASKU, UNIT DOSE :  5 MG
     Route: 065
  49. ZUCLOPENTHIXOL [Suspect]
     Active Substance: ZUCLOPENTHIXOL
     Indication: Product used for unknown indication
     Dosage: 300 MG, WEEKLY, FREQUENCY TIME : 1 WEEKS, UNIT DOSE : 300 MG, DURATION : 106 DAYS
  50. ZUCLOPENTHIXOL [Suspect]
     Active Substance: ZUCLOPENTHIXOL
     Dosage: 400 MILLIGRAM, CYCLICAL, (400 MG, CYCLIC (400 MG, BIWEEKLY), FREQUENCY TIME : 1 WEEKS, UNIT DOSE : 4
     Dates: start: 20040217, end: 20040601
  51. TRASTUZUMAB [Suspect]
     Active Substance: TRASTUZUMAB
     Indication: Breast cancer metastatic
     Dosage: UNIT DOSE: 1218 MILLIGRAM,  THERAPY END DATE : NASK, FREQUENCY TIME : 1 WEEKS
     Dates: start: 20150930
  52. TRASTUZUMAB [Suspect]
     Active Substance: TRASTUZUMAB
     Dosage: 840 MG, Q3W (CUMULATIVE DOSE: 2481.6667 MG, FREQUENCY TIME : 3 WEEKS
  53. TRASTUZUMAB [Suspect]
     Active Substance: TRASTUZUMAB
     Dosage: 609 MG, 2/W,  THERAPY END DATE : NASK, FREQUENCY TIME : 1 WEEKS
     Dates: start: 20150930
  54. TRASTUZUMAB [Suspect]
     Active Substance: TRASTUZUMAB
     Dosage: 609 MG, Q3W (1799.20 MG), THERAPY END DATE : ASKU, FREQUENCY TIME : 3 WEEKS
     Dates: start: 20150930
  55. TRASTUZUMAB [Suspect]
     Active Substance: TRASTUZUMAB
     Dosage: 420 MG, Q3W (CUMULATIVE DOSE: 820.83 MG), FREQUENCY TIME : 3 WEEKS
  56. CLOZARIL [Suspect]
     Active Substance: CLOZAPINE
     Indication: Schizophrenia
     Dosage: 400 MILLIGRAM DAILY; 400 MG, BID, THERAPY START DATE : ASKU , THERAPY END DATE : ASKU
  57. CLOZARIL [Suspect]
     Active Substance: CLOZAPINE
     Dosage: 400 MILLIGRAM DAILY; 400 MG QD, THERAPY END DATE : ASKU
     Dates: start: 20201207
  58. CLOZARIL [Suspect]
     Active Substance: CLOZAPINE
     Dosage: 100 MILLIGRAM DAILY; 100 MG, QD(1X/DAY (AM)), THERAPY END DATE : ASKU
     Dates: start: 2011
  59. CLOZARIL [Suspect]
     Active Substance: CLOZAPINE
     Dosage: UNK
     Dates: start: 20200521, end: 2021
  60. CLOZARIL [Suspect]
     Active Substance: CLOZAPINE
     Dosage: 6000 MG
     Dates: start: 20201209, end: 20201223
  61. CLOZARIL [Suspect]
     Active Substance: CLOZAPINE
     Dosage: 50 MILLIGRAM DAILY; 50 MG, QD(1X/DAY (MIDDAY)), THERAPY START DATE : ASKU , THERAPY END DATE : ASKU
  62. CLOZARIL [Suspect]
     Active Substance: CLOZAPINE
     Dosage: 50 MILLIGRAM DAILY; 50 MG, DAILY
     Dates: start: 20191209, end: 20191223
  63. CLOZARIL [Suspect]
     Active Substance: CLOZAPINE
     Dosage: 300 MILLIGRAM DAILY; 300 MILLIGRAM, ONCE A DAY
  64. CLOZARIL [Suspect]
     Active Substance: CLOZAPINE
     Dosage: UNK DF, THERAPY END DATE : ASKU
     Dates: start: 2011
  65. CLOZARIL [Suspect]
     Active Substance: CLOZAPINE
     Dosage: 245 MILLIGRAM, THERAPY END DATE : NASK
     Dates: start: 20200521
  66. CLOZARIL [Suspect]
     Active Substance: CLOZAPINE
     Dosage: 6000 MG, THERAPY END DATE : ASKU
     Dates: start: 20201207
  67. CLOZARIL [Suspect]
     Active Substance: CLOZAPINE
     Dates: start: 20191223, end: 20191223
  68. CLOZARIL [Suspect]
     Active Substance: CLOZAPINE
     Dosage: 6000 MG
     Dates: start: 20201223, end: 20201223
  69. CLOZARIL [Suspect]
     Active Substance: CLOZAPINE
     Dosage: UNK, THERAPY END DATE : ASKU
     Dates: start: 20100823
  70. CLOZARIL [Suspect]
     Active Substance: CLOZAPINE
     Dosage: 400 MILLIGRAM DAILY; 200 MILLIGRAM, TWO TIMES A DAY
  71. CLOZARIL [Suspect]
     Active Substance: CLOZAPINE
     Dosage: 245 MILLIGRAM DAILY; 245 MILLIGRAM, ONCE A DAY, THERAPY END DATE : ASKU
     Dates: start: 2011
  72. CLOZARIL [Suspect]
     Active Substance: CLOZAPINE
     Dosage: 400 MILLIGRAM DAILY; 200 MG, BID
     Dates: start: 20191209, end: 20191223
  73. CLOZARIL [Suspect]
     Active Substance: CLOZAPINE
     Dosage: 800 MILLIGRAM DAILY; 800 MG DAILY, THERAPY END DATE : NASK
     Dates: start: 20201207
  74. CLOZARIL [Suspect]
     Active Substance: CLOZAPINE
     Dosage: 400 MILLIGRAM DAILY; 200 MG, BID, THERAPY START DATE : ASKU , THERAPY END DATE : ASKU
  75. CLOZARIL [Suspect]
     Active Substance: CLOZAPINE
     Dosage: 800 MILLIGRAM DAILY; 800 MG, QD, THERAPY START DATE : ASKU , THERAPY END DATE : ASKU
  76. CLOZARIL [Suspect]
     Active Substance: CLOZAPINE
     Dosage: 245 MG, UNKNOWN
     Dates: start: 20191223, end: 20191223
  77. CLOZARIL [Suspect]
     Active Substance: CLOZAPINE
     Dosage: 400 MILLIGRAM DAILY; 200 MILLIGRAM, TWO TIMES A DAY, THERAPY START DATE : ASKU , THERAPY END DATE :
  78. CLOZARIL [Suspect]
     Active Substance: CLOZAPINE
     Dosage: UNK
     Dates: start: 20191209, end: 20191223
  79. CLOZARIL [Suspect]
     Active Substance: CLOZAPINE
     Dosage: 245 MILLIGRAM, THERAPY END DATE : NASK
     Dates: start: 20191207
  80. CLOZARIL [Suspect]
     Active Substance: CLOZAPINE
     Dosage: 245 MG
     Dates: start: 20191209, end: 20191223
  81. CLOZARIL [Suspect]
     Active Substance: CLOZAPINE
     Dosage: 400 MG, QD, THERAPY START DATE : ASKU , THERAPY END DATE : ASKU
  82. CLOZARIL [Suspect]
     Active Substance: CLOZAPINE
     Dosage: 100 MILLIGRAM DAILY; 100 MG, QD (100 MG, QD (EACH MORNING), THERAPY START DATE : ASKU , THERAPY END
  83. CLOZARIL [Suspect]
     Active Substance: CLOZAPINE
     Dosage: 200 MILLIGRAM DAILY; 200 MILLIGRAM, ONCE A DAY, 200 MILLIGRAM, BID OFF LABEL USE
  84. CLOZARIL [Suspect]
     Active Substance: CLOZAPINE
     Dosage: UNK
     Dates: start: 20191223, end: 20191223
  85. CLOZARIL [Suspect]
     Active Substance: CLOZAPINE
     Dosage: 400 MILLIGRAM DAILY; 400 MG, QD
     Dates: start: 20191209, end: 20191223
  86. CLOZARIL [Suspect]
     Active Substance: CLOZAPINE
     Dosage: 400 MILLIGRAM DAILY; 400 MG, QD, THERAPY START DATE : ASKU , THERAPY END DATE : ASKU
  87. CLOZARIL [Suspect]
     Active Substance: CLOZAPINE
     Dosage: 100 MILLIGRAM DAILY; 100 MG, QD, THERAPY START DATE : ASKU , THERAPY END DATE : ASKU
  88. CLOZARIL [Suspect]
     Active Substance: CLOZAPINE
     Dosage: 400 MILLIGRAM DAILY; 400 MG, QD, THERAPY START DATE : ASKU , THERAPY END DATE : ASKU
  89. CLOZARIL [Suspect]
     Active Substance: CLOZAPINE
     Dosage: 300 MILLIGRAM DAILY; 300 MILLIGRAM, ONCE A DAY PM, THERAPY END DATE : NASK
     Dates: start: 20100823
  90. CLOZARIL [Suspect]
     Active Substance: CLOZAPINE
     Dosage: 275 MILLIGRAM DAILY; 275 MG, QD, THERAPY START DATE : ASKU , THERAPY END DATE : ASKU
  91. CLOZARIL [Suspect]
     Active Substance: CLOZAPINE
     Dosage: UNK
     Dates: start: 20191209, end: 20191223
  92. CLOZARIL [Suspect]
     Active Substance: CLOZAPINE
     Dosage: 50 MILLIGRAM DAILY; 50 MG, QD (MIDDAY), THERAPY END DATE : ASKU
     Dates: start: 20200521
  93. CLOZARIL [Suspect]
     Active Substance: CLOZAPINE
     Dosage: 6000 MG, THERAPY END DATE : ASKU
     Dates: start: 20200521
  94. CLOZARIL [Suspect]
     Active Substance: CLOZAPINE
     Dosage: UNK, QD
     Dates: start: 20191223, end: 20191223
  95. CLOZARIL [Suspect]
     Active Substance: CLOZAPINE
     Dosage: 6000 MG, THERAPY END DATE : ASKU
     Dates: start: 20201207
  96. CLOZARIL [Suspect]
     Active Substance: CLOZAPINE
     Dosage: 6000 MG
     Dates: start: 20191223, end: 20191223
  97. CLOZARIL [Suspect]
     Active Substance: CLOZAPINE
     Dosage: 6000 MG
     Dates: start: 20200521, end: 2020
  98. CLOZARIL [Suspect]
     Active Substance: CLOZAPINE
     Dosage: 600 MILLIGRAM DAILY; 600 MG, QD AM (1 ONCE A DAY), THERAPY END DATE : ASKU
     Dates: start: 2011
  99. CLOZARIL [Suspect]
     Active Substance: CLOZAPINE
     Dosage: 275 MILLIGRAM DAILY; 275 MILLIGRAM, ONCE A DAY PM
  100. CLOZARIL [Suspect]
     Active Substance: CLOZAPINE
     Dosage: 275 MILLIGRAM DAILY; 275 MG, QD, THERAPY START DATE : ASKU , THERAPY END DATE : ASKU
  101. CLOZARIL [Suspect]
     Active Substance: CLOZAPINE
     Dosage: UNK
     Dates: start: 20191207, end: 20191223
  102. CLOZARIL [Suspect]
     Active Substance: CLOZAPINE
     Dosage: 300 MILLIGRAM DAILY; 300 MG, QD(1X/DAY (PM)), THERAPY START DATE : ASKU , THERAPY END DATE : ASKU
  103. CLOZARIL [Suspect]
     Active Substance: CLOZAPINE
     Dosage: 245 MILLIGRAM,  THERAPY END DATE : NASK
     Dates: start: 20100823
  104. CLOZARIL [Suspect]
     Active Substance: CLOZAPINE
     Dosage: 275 MILLIGRAM DAILY; 275 MG, QD
     Dates: start: 20200521, end: 2020
  105. CLOZARIL [Suspect]
     Active Substance: CLOZAPINE
     Dosage: 275 MILLIGRAM DAILY; 275 MG, QD, THERAPY START DATE : ASKU , THERAPY END DATE : ASKU
  106. CLOZARIL [Suspect]
     Active Substance: CLOZAPINE
     Dosage: 245 MILLIGRAM DAILY; 245 MILLIGRAM, DAILY
     Dates: start: 20191209, end: 20191223
  107. CLOZARIL [Suspect]
     Active Substance: CLOZAPINE
     Dosage: 6000 MG, THERAPY END DATE : ASKU
     Dates: start: 20100823
  108. CLOZARIL [Suspect]
     Active Substance: CLOZAPINE
     Dosage: 400 MILLIGRAM DAILY; 400 MG, QD, THERAPY START DATE : ASKU , THERAPY END DATE : ASKU
  109. CLOZARIL [Suspect]
     Active Substance: CLOZAPINE
     Dosage: 50 MILLIGRAM DAILY; 50 MG, QD, THERAPY START DATE : ASKU , THERAPY END DATE : ASKU
  110. CLOZARIL [Suspect]
     Active Substance: CLOZAPINE
     Dosage: 1 DOSAGE FORMS DAILY; 1 DF, QD, 1 DOSAGE FORM, ONCE A DAY (1 DF, EACH MORNING), THERAPY END DATE : A
     Dates: start: 2011
  111. RISPERDAL [Suspect]
     Active Substance: RISPERIDONE
     Indication: Schizophrenia
     Dosage: 1 GRAM DAILY; 1 GRAM, ONCE A DAY, THERAPY START DATE : ASKU , THERAPY END DATE : ASKU
     Route: 065
  112. RISPERDAL [Suspect]
     Active Substance: RISPERIDONE
     Dosage: 6 MILLIGRAM DAILY; 6 MILLIGRAM, ONCE A DAY, THERAPY START DATE : ASKU , THERAPY END DATE : ASKU
     Route: 065
  113. RISPERDAL [Suspect]
     Active Substance: RISPERIDONE
     Dosage: 6 MILLIGRAM DAILY; 3 MILLIGRAM, TWO TIMES A DAY, THERAPY START DATE : ASKU , THERAPY END DATE : ASKU
     Route: 065
  114. RISPERDAL [Suspect]
     Active Substance: RISPERIDONE
     Dosage: 1 MILLIGRAM DAILY; 1 MG, QD, THERAPY START DATE : ASKU , THERAPY END DATE : ASKU
     Route: 065
  115. RISPERDAL [Suspect]
     Active Substance: RISPERIDONE
     Dosage: 6 MILLIGRAM DAILY; 6 MG, QD, 6 MILLIGRAM, ONCE A DAY (6 MG, QD, THERAPY START DATE : ASKU , THERAPY
     Route: 065
  116. RISPERDAL [Suspect]
     Active Substance: RISPERIDONE
     Dosage: 6 MILLIGRAM DAILY; 3 MG, BID, THERAPY START DATE : ASKU , THERAPY END DATE : ASKU
     Route: 065
  117. RISPERDAL [Suspect]
     Active Substance: RISPERIDONE
     Dosage: 2 MILLIGRAM, UNIT DOSE :   2 MG, FREQUENCY TIME : 12 HOURS
     Route: 065
  118. RISPERDAL [Suspect]
     Active Substance: RISPERIDONE
     Dosage: 4 MILLIGRAM, ONCE A DAY (4 MG, QD), UNIT DOSE :   4 MG, FREQUENCY TIME : 12 HOURS
     Route: 065
  119. RISPERDAL [Suspect]
     Active Substance: RISPERIDONE
     Dosage: 1 MILLIGRAM DAILY; 1 MILLIGRAM, QD, THERAPY START DATE : ASKU , THERAPY END DATE : ASKU
     Route: 065
  120. RISPERDAL [Suspect]
     Active Substance: RISPERIDONE
     Dosage: 6 MILLIGRAM DAILY; 6 MILLIGRAM, QD (3 MG, 2X/DAY), THERAPY START DATE : ASKU , THERAPY END DATE : AS
     Route: 065
  121. RISPERDAL [Suspect]
     Active Substance: RISPERIDONE
     Dosage: 3 MG, Q12H, THERAPY START DATE : ASKU , THERAPY END DATE : ASKU
     Route: 065
  122. RISPERDAL [Suspect]
     Active Substance: RISPERIDONE
     Dosage: 1 MILLIGRAM, ONCE A DAY (QD), THERAPY START DATE : ASKU , THERAPY END DATE : ASKU
  123. RISPERDAL [Suspect]
     Active Substance: RISPERIDONE
     Dosage: 1 GRAM DAILY; 1 GRAM, QD, THERAPY START DATE : ASKU , THERAPY END DATE : ASKU
  124. RISPERDAL [Suspect]
     Active Substance: RISPERIDONE
     Dosage: 1 GRAM DAILY; 1 G, DAILY, THERAPY START DATE : ASKU , THERAPY END DATE : ASKU
  125. RISPERDAL [Suspect]
     Active Substance: RISPERIDONE
     Dosage: 4 MILLIGRAM DAILY; 2 MG, BID, THERAPY START DATE : ASKU , THERAPY END DATE : ASKU
  126. RISPERDAL [Suspect]
     Active Substance: RISPERIDONE
     Dosage: 4 MILLIGRAM DAILY; 2 MG, BID, THERAPY START DATE : ASKU , THERAPY END DATE : ASKU
  127. RISPERDAL [Suspect]
     Active Substance: RISPERIDONE
     Dosage: 3 MILLIGRAM, TWO TIMES A DAY, THERAPY START DATE : ASKU , THERAPY END DATE : ASKU
  128. RISPERDAL [Suspect]
     Active Substance: RISPERIDONE
     Dosage: 1 GRAM DAILY; 1 G, DAILY
  129. RISPERDAL [Suspect]
     Active Substance: RISPERIDONE
     Dosage: 4 MILLIGRAM DAILY; 2 MG, BID, THERAPY START DATE : ASKU , THERAPY END DATE : ASKU
  130. RISPERDAL [Suspect]
     Active Substance: RISPERIDONE
     Dosage: 4 MILLIGRAM DAILY; 2 MILLIGRAM, BID, THERAPY START DATE : ASKU , THERAPY END DATE : ASKU
  131. RISPERDAL [Suspect]
     Active Substance: RISPERIDONE
     Dosage: 1 GRAM DAILY; 1 G, DAILY, THERAPY START DATE : ASKU , THERAPY END DATE : ASKU
  132. RISPERDAL [Suspect]
     Active Substance: RISPERIDONE
     Dosage: 4 MILLIGRAM DAILY; 4 MILLIGRAM, QD (2 MG, 2X/DAY), THERAPY START DATE : ASKU , THERAPY END DATE : AS
  133. RISPERDAL [Suspect]
     Active Substance: RISPERIDONE
     Dosage: 3 MG, BID, THERAPY START DATE : ASKU , THERAPY END DATE : ASKU
  134. RISPERDAL [Suspect]
     Active Substance: RISPERIDONE
     Dosage: 4 MILLIGRAM, ONCE A DAY (4 MG, QD), THERAPY START DATE : ASKU , THERAPY END DATE : ASKU
  135. RISPERDAL [Suspect]
     Active Substance: RISPERIDONE
     Dosage: 1 GRAM DAILY; 1 G, QD
  136. RISPERDAL [Suspect]
     Active Substance: RISPERIDONE
     Dosage: 2 MILLIGRAM, THERAPY START DATE : ASKU , THERAPY END DATE : ASKU
  137. ZUCLOPENTHIXOL [Suspect]
     Active Substance: ZUCLOPENTHIXOL
     Indication: Product used for unknown indication
     Dosage: THERAPY END DATE : NASK, UNIT DOSE :   400 MG, DURATION : 6.543 YEARS
     Route: 065
     Dates: start: 20091018
  138. ZUCLOPENTHIXOL [Suspect]
     Active Substance: ZUCLOPENTHIXOL
     Dosage: 400 MG, QCY, UNIT DOSE :   400 MG, DURATION : 6.543 YEARS
     Route: 065
     Dates: start: 20040217, end: 20040601
  139. ZUCLOPENTHIXOL [Suspect]
     Active Substance: ZUCLOPENTHIXOL
     Dosage: 800 MG, QW, (04 FEB 2003), THERAPY START DATE  : NASK, UNIT DOSE :   800 MG, DURATION : 6.543 YEARS,
     Route: 065
     Dates: end: 20040217
  140. ZUCLOPENTHIXOL [Suspect]
     Active Substance: ZUCLOPENTHIXOL
     Dosage: 400 MG, OTHER (BIWEEKLY), UNIT DOSE :   400 MG, DURATION : 6.543 YEARS, FREQUENCY TIME : 1 WEEKS
     Route: 065
     Dates: start: 20041018, end: 20041018
  141. ZUCLOPENTHIXOL [Suspect]
     Active Substance: ZUCLOPENTHIXOL
     Dosage: 400 MG, BIW, UNIT DOSE :   800 MG, DURATION : 6.543 YEARS, FREQUENCY TIME : 1 WEEKS
     Route: 065
     Dates: start: 20040601, end: 20041018
  142. ZUCLOPENTHIXOL [Suspect]
     Active Substance: ZUCLOPENTHIXOL
     Dosage: 300 MG, QW (300 MILLIGRAM I.M WEEKLY),  THERAPY END DATE : ASKU, UNIT DOSE : 300 MG, DURATION : 6.54
     Route: 065
     Dates: start: 20091009
  143. ZUCLOPENTHIXOL [Suspect]
     Active Substance: ZUCLOPENTHIXOL
     Dosage: 400 MG, BIW, UNIT DOSE : 400 MG, DURATION : 6.543 YEARS, FREQUENCY TIME : 1 WEEKS
     Route: 065
     Dates: start: 20030204, end: 20040217
  144. ZUCLOPENTHIXOL [Suspect]
     Active Substance: ZUCLOPENTHIXOL
     Dosage: 400 MG, OTHER (BIWEEKLY), UNIT DOSE : 400 MG, DURATION : 6.543 YEARS, FREQUENCY TIME : 1 DAY
     Route: 065
     Dates: start: 20041018, end: 20041018
  145. ZUCLOPENTHIXOL [Suspect]
     Active Substance: ZUCLOPENTHIXOL
     Dosage: 400 MG, CYCLIC (400 MG, BIWEEKLY), UNIT DOSE :   400 MG, DURATION : 6.543 YEARS, FREQUENCY TIME : 1
     Route: 065
     Dates: start: 20040601, end: 20041018
  146. ZUCLOPENTHIXOL [Suspect]
     Active Substance: ZUCLOPENTHIXOL
     Dosage: 300 MILLIGRAM DAILY; 300 MG, QD, THERAPY END DATE : ASKU, DURATION : 6.543 YEARS,
     Route: 065
     Dates: start: 20091009
  147. ZUCLOPENTHIXOL [Suspect]
     Active Substance: ZUCLOPENTHIXOL
     Dosage: 400 MG, BIW, UNIT DOSE :   800 MG, DURATION : 6.543 YEARS, FREQUENCY TIME : 1 WEEKS
     Route: 065
     Dates: start: 20041018, end: 20041018
  148. ZUCLOPENTHIXOL [Suspect]
     Active Substance: ZUCLOPENTHIXOL
     Dosage: 400 MILLIGRAM, EVERY WEEK, UNIT DOSE :   400 MG, DURATION : 6.543 YEARS, FREQUENCY TIME : 1 WEEKS
     Route: 065
  149. ZUCLOPENTHIXOL [Suspect]
     Active Substance: ZUCLOPENTHIXOL
     Dosage: CYCLE,  THERAPY END DATE : NASK, UNIT DOSE :   400 MG, DURATION : 6.543. YEARS
     Route: 065
     Dates: start: 20091018
  150. ZUCLOPENTHIXOL [Suspect]
     Active Substance: ZUCLOPENTHIXOL
     Dosage: 400 MG, CYCLIC (400 MG, BIWEEKLY); CYCLICAL, UNIT DOSE :   400 MG, DURATION : 6.543 YEARS, FREQUENCY
     Route: 065
     Dates: start: 20030204, end: 20040217
  151. ZUCLOPENTHIXOL [Suspect]
     Active Substance: ZUCLOPENTHIXOL
     Dosage: 400 MILLIGRAM, WEEKLY/17-FEB-2004, THERAPY START DATE  : NASK, UNIT DOSE :   400 MG, DURATION : 6.54
     Route: 065
     Dates: end: 20040601
  152. ZUCLOPENTHIXOL [Suspect]
     Active Substance: ZUCLOPENTHIXOL
     Dosage: 400 MG, QW, UNIT DOSE :   800 MG, DURATION : 6.543 YEARS, FREQUENCY TIME : 1 WEEKS
     Route: 065
     Dates: start: 20040217, end: 20040601
  153. ZUCLOPENTHIXOL [Suspect]
     Active Substance: ZUCLOPENTHIXOL
     Dosage: 300 MG, QW, THERAPY END DATE : ASKU, UNIT DOSE :   300 MG, DURATION : 6.543 YEARS, FREQUENCY TIME :
     Route: 065
     Dates: start: 20091018
  154. ZUCLOPENTHIXOL [Suspect]
     Active Substance: ZUCLOPENTHIXOL
     Dosage: 400 MILLIGRAM, EVERY WEEK, UNIT DOSE :   800 MG, DURATION : 6.543 YEARS, FREQUENCY TIME : 1 WEEKS
     Route: 065
  155. ZUCLOPENTHIXOL [Suspect]
     Active Substance: ZUCLOPENTHIXOL
     Dosage: 300 MILLIGRAM, QD (300 MILLIGRAM I.M WEEKLY)09-OCT-2009, UNIT DOSE :   300 MG, DURATION : 6.543 YEAR
     Route: 065
  156. ZUCLOPENTHIXOL [Suspect]
     Active Substance: ZUCLOPENTHIXOL
     Dosage: THERAPY START DATE : NASK, UNIT DOSE :   400 MG, DURATION : 6.543 YEARS
     Route: 065
     Dates: end: 20041018
  157. ZUCLOPENTHIXOL [Suspect]
     Active Substance: ZUCLOPENTHIXOL
     Dosage: UNK, THERAPY START DATE : ASKU , THERAPY END DATE : ASKU, DURATION : 6.543 YEARS
     Route: 065
  158. ZUCLOPENTHIXOL [Suspect]
     Active Substance: ZUCLOPENTHIXOL
     Dosage: 400 MG, CYCLIC (400 MG, BIWEEKLY), UNIT DOSE :   800 MG, DURATION : 6.543 YEARS, FREQUENCY TIME : 1
     Route: 065
     Dates: start: 20030204, end: 20040217
  159. PERTUZUMAB [Suspect]
     Active Substance: PERTUZUMAB
     Indication: Breast cancer metastatic
     Dosage: 2 U, WEEKLY (1/W), UNIT DOSE : 2 IU, FREQUENCY TIME : 1 WEEK
     Route: 065
  160. PERTUZUMAB [Suspect]
     Active Substance: PERTUZUMAB
     Dosage: 420 MG, Q3W (CUMULATIVE DOSE: 820.83 MG)1, THERAPY END DATE : NASK, UNIT DOSE : 420 MG, FREQUENCY TI
     Route: 065
     Dates: start: 20151021
  161. PERTUZUMAB [Suspect]
     Active Substance: PERTUZUMAB
     Dosage: 840 MG, Q3W (CUMULATIVE DOSE: 2481.6667 MG), THERAPY END DATE : NASK, UNIT DOSE :840 MG, FREQUENCY T
     Route: 065
     Dates: start: 20150930
  162. LITHIUM [Suspect]
     Active Substance: LITHIUM
     Indication: Product used for unknown indication
     Dosage: 6 MILLIGRAM DAILY; 6 MG, QD, THERAPY START DATE : ASKU , THERAPY END DATE : ASKU
     Route: 065
  163. LITHIUM [Suspect]
     Active Substance: LITHIUM
     Dosage: 1 G, THERAPY START DATE : ASKU , THERAPY END DATE : ASKU, UNIT DOSE : 1 G
     Route: 065
  164. LITHIUM [Suspect]
     Active Substance: LITHIUM
     Dosage: 1 G, THERAPY START DATE : ASKU , THERAPY END DATE : ASKU, UNIT DOSE : 1 G
     Route: 065
  165. LITHIUM [Suspect]
     Active Substance: LITHIUM
     Dosage: 1 MG, THERAPY START DATE : ASKU , THERAPY END DATE : ASKU UNIT DOSE : 1 G
     Route: 065
  166. LITHIUM [Suspect]
     Active Substance: LITHIUM
     Dosage: 2 G, THERAPY START DATE : ASKU , THERAPY END DATE : ASKU, UNIT DOSE : 2 G
     Route: 065
  167. CHLORPROMAZINE [Suspect]
     Active Substance: CHLORPROMAZINE
     Indication: Schizophrenia
     Dosage: 75 MG, UNKNOWN, UNIT DOSE : 75 MG
     Route: 065
  168. CHLORPROMAZINE [Suspect]
     Active Substance: CHLORPROMAZINE
     Dosage: 75 MG, THERAPY START DATE : ASKU , THERAPY END DATE : ASKU, UNIT DOSE : 75 MG
     Route: 065
  169. CHLORPROMAZINE [Suspect]
     Active Substance: CHLORPROMAZINE
     Dosage: 75 MG, THERAPY START DATE : ASKU , THERAPY END DATE : ASKU UNIT DOSE : 75 MG
     Route: 065
  170. CHLORPROMAZINE [Suspect]
     Active Substance: CHLORPROMAZINE
     Dosage: 75 MG, THERAPY START DATE : ASKU , THERAPY END DATE : ASKU, UNIT DOSE : 75 MG
     Route: 065
  171. CHLORPROMAZINE [Suspect]
     Active Substance: CHLORPROMAZINE
     Dosage: 75 MG, UNIT DOSE : 75 MG
     Route: 065
  172. CHLORPROMAZINE [Suspect]
     Active Substance: CHLORPROMAZINE
     Dosage: 75 MG, THERAPY START DATE : ASKU , THERAPY END DATE : ASKU, UNIT DOSE : 75 MG
     Route: 065
  173. CHLORPROMAZINE [Suspect]
     Active Substance: CHLORPROMAZINE
     Dosage: 75 MG, THERAPY START DATE : ASKU , THERAPY END DATE : ASKU, UNIT DOSE : 75 MG
     Route: 065
  174. LORAZEPAM [Suspect]
     Active Substance: LORAZEPAM
     Indication: Schizophrenia
     Dosage: 1 MG, THERAPY START DATE : ASKU , THERAPY END DATE : ASKU
  175. LORAZEPAM [Suspect]
     Active Substance: LORAZEPAM
     Dosage: 1 MG, THERAPY START DATE : ASKU , THERAPY END DATE : ASKU
  176. LORAZEPAM [Suspect]
     Active Substance: LORAZEPAM
     Dosage: 1 MG, UNKNOWN
  177. CHLORPHENIRAMINE MALEATE [Concomitant]
     Active Substance: CHLORPHENIRAMINE MALEATE
     Indication: Product used for unknown indication
     Dosage: UNIT DOSE : 10 MG, FREQUENCY TIME : 1 WEEKS
     Dates: start: 20151111
  178. MORPHINE SULFATE [Concomitant]
     Active Substance: MORPHINE SULFATE
     Indication: Product used for unknown indication
     Dosage: 10 MG
     Dates: start: 201509
  179. CHOLECALCIFEROL [Concomitant]
     Active Substance: CHOLECALCIFEROL
     Indication: Product used for unknown indication
     Dosage: 2 DOSAGE FORMS DAILY; 2 DOSAGE FORM, QD
  180. AMOXICILLIN\CLAVULANATE POTASSIUM [Concomitant]
     Active Substance: AMOXICILLIN\CLAVULANATE POTASSIUM
     Indication: Febrile neutropenia
     Dosage: 120 MG, OTHER (EVERY 9 WEEKS), UNIT DOSE :   625 MG, DURATION : 3 DAYS
     Dates: start: 20151111
  181. AMOXICILLIN\CLAVULANATE POTASSIUM [Concomitant]
     Active Substance: AMOXICILLIN\CLAVULANATE POTASSIUM
     Dosage: 625 MG (EVERY 0.33 DAYS, CUMULATIVE DOSE: 16875), UNIT DOSE :   625 MG, DURATION : 3 DAYS
     Dates: start: 20151122, end: 20151125
  182. AMOXICILLIN\CLAVULANATE POTASSIUM [Concomitant]
     Active Substance: AMOXICILLIN\CLAVULANATE POTASSIUM
     Dosage: 625 MG, QID, UNIT DOSE : 2500 MG, DURATION : 3 DAYS, FREQUENCY TIME : 1 DAY
     Dates: start: 20151122
  183. TAZOBACTAM SODIUM [Concomitant]
     Active Substance: TAZOBACTAM SODIUM
     Indication: Febrile neutropenia
     Dosage: UNK
     Dates: start: 20151121
  184. ACETAMINOPHEN [Concomitant]
     Active Substance: ACETAMINOPHEN
     Indication: Pain
     Dosage: 15 MILLIGRAM DAILY; 15 MG, DAILY, PARACETAMOL (NON MAH)
     Dates: start: 201510
  185. ACETAMINOPHEN [Concomitant]
     Active Substance: ACETAMINOPHEN
     Dosage: 500 MG, UNKNOWN
     Dates: start: 20150127
  186. PIPERACILLIN SODIUM\TAZOBACTAM SODIUM [Concomitant]
     Active Substance: PIPERACILLIN SODIUM\TAZOBACTAM SODIUM
     Indication: Febrile neutropenia
     Dosage: UNK
     Dates: start: 20151121, end: 201511
  187. MORPHINE [Concomitant]
     Active Substance: MORPHINE
     Indication: Pain
     Dosage: 30 MG (EVERY 0.5 DAY)
     Dates: start: 201509
  188. MORPHINE [Concomitant]
     Active Substance: MORPHINE
     Dosage: 60 MILLIGRAM DAILY; 30 MG, BID
     Dates: start: 201509
  189. MORPHINE [Concomitant]
     Active Substance: MORPHINE
     Dosage: 15 MILLIGRAM DAILY; 15 MG, DAILY
     Dates: start: 201510
  190. MORPHINE [Concomitant]
     Active Substance: MORPHINE
     Dosage: 60 MILLIGRAM DAILY; 60 MG, QD (30 MG, BID)
     Dates: start: 201509
  191. MIRTAZAPINE [Concomitant]
     Active Substance: MIRTAZAPINE
     Indication: Product used for unknown indication
     Dosage: 15 MILLIGRAM DAILY; 15 MG, DAILY
     Dates: start: 201510
  192. PREGABALIN [Concomitant]
     Active Substance: PREGABALIN
     Indication: Product used for unknown indication
     Dosage: 75 MG, EVERY 0.5 DAY
     Dates: start: 201509
  193. PREGABALIN [Concomitant]
     Active Substance: PREGABALIN
     Dosage: 150 MILLIGRAM DAILY; 75 MG, BID
     Dates: start: 201509
  194. PREGABALIN [Concomitant]
     Active Substance: PREGABALIN
     Dosage: 150 MILLIGRAM DAILY; 150 MILLIGRAM, QD
  195. DENOSUMAB [Concomitant]
     Active Substance: DENOSUMAB
     Indication: Gastrooesophageal reflux disease
     Dosage: 625 MG, QID, UNIT DOSE : 120 MG , FREQUENCY TIME : 1 DAY
     Dates: start: 20150930
  196. DENOSUMAB [Concomitant]
     Active Substance: DENOSUMAB
     Indication: Metastases to bone
     Dosage: 120 MG, OTHER (EVERY 9 WEEKS)
     Dates: start: 20150930
  197. RANITIDINE [Concomitant]
     Active Substance: RANITIDINE
     Indication: Gastrooesophageal reflux disease
     Dosage: 50 MILLIGRAM, QWK
  198. RANITIDINE [Concomitant]
     Active Substance: RANITIDINE
     Dosage: 50 MILLIGRAM, QWK, UNIT DOSE :  75 MG
     Dates: start: 20151111
  199. RANITIDINE [Concomitant]
     Active Substance: RANITIDINE
     Dosage: 50 MG, QW (CUMULATIVE DOSE: 142.857), UNIT DOSE : 50 MG , FREQUENCY TIME : 1 DAY
     Dates: start: 20151111
  200. RANITIDINE [Concomitant]
     Active Substance: RANITIDINE
     Dosage: 50 MG, WEEKLY (1/W), UNIT DOSE : 50 MG , FREQUENCY TIME : 1 WEEKS
  201. LEVOFLOXACIN [Concomitant]
     Active Substance: LEVOFLOXACIN
     Indication: Febrile neutropenia
     Dosage: 500 MILLIGRAM DAILY; 500 MG, DAILY
     Dates: start: 20151125
  202. CALCIUM\CHOLECALCIFEROL [Concomitant]
     Active Substance: CALCIUM\CHOLECALCIFEROL
     Indication: Product used for unknown indication
     Dates: start: 20091018
  203. CALCIUM\CHOLECALCIFEROL [Concomitant]
     Active Substance: CALCIUM\CHOLECALCIFEROL
     Dosage: UNIT DOSE : 2 DF , FREQUENCY TIME : 1 DAY
  204. GENTAMICIN [Concomitant]
     Active Substance: GENTAMICIN
     Indication: Febrile neutropenia
     Dates: start: 20151121, end: 201511
  205. DULOXETINE [Concomitant]
     Active Substance: DULOXETINE
     Indication: Product used for unknown indication

REACTIONS (33)
  - Off label use [Fatal]
  - Fatigue [Fatal]
  - Disease progression [Fatal]
  - Alopecia [Fatal]
  - Schizophrenia [Fatal]
  - Neutrophil count increased [Fatal]
  - Platelet count decreased [Fatal]
  - Fatigue [Fatal]
  - Rhinalgia [Fatal]
  - Cellulitis [Fatal]
  - Off label use [Fatal]
  - Psychotic disorder [Fatal]
  - Neutropenia [Fatal]
  - Fatigue [Fatal]
  - Diarrhoea [Fatal]
  - Dyspepsia [Fatal]
  - Extrapyramidal disorder [Fatal]
  - Delusion of grandeur [Fatal]
  - Extrapyramidal disorder [Fatal]
  - Off label use [Fatal]
  - Lymphocyte count decreased [Fatal]
  - Nausea [Fatal]
  - Seizure [Fatal]
  - Affective disorder [Fatal]
  - Leukopenia [Fatal]
  - COVID-19 [Fatal]
  - Overdose [Fatal]
  - Incorrect dose administered [Fatal]
  - Mucosal inflammation [Fatal]
  - Neuropathy peripheral [Fatal]
  - SARS-CoV-2 test positive [Fatal]
  - Lymphocyte count abnormal [Fatal]
  - Hallucination, auditory [Fatal]

NARRATIVE: CASE EVENT DATE: 20151101
